FAERS Safety Report 4554134-1 (Version None)
Quarter: 2005Q1

REPORT INFORMATION
  Report Type: 
  Country: None (occurrence: None)
  Receive Date: 20050118
  Receipt Date: 20050114
  Transmission Date: 20050727
  Serious: Yes (Death)
  Sender: FDA-Public Use
  Company Number: PHBS2005JP00928

PATIENT
  Age: 31 Year
  Sex: Female

DRUGS (1)
  1. CYCLOSPORINE [Suspect]
     Route: 048

REACTIONS (3)
  - CEREBRAL HAEMORRHAGE [None]
  - DISEASE RECURRENCE [None]
  - NERVOUS SYSTEM DISORDER [None]
